FAERS Safety Report 6426009-4 (Version None)
Quarter: 2009Q4

REPORT INFORMATION
  Report Type: 
  Country: None (occurrence: None)
  Receive Date: 20091104
  Receipt Date: 20091021
  Transmission Date: 20100525
  Serious: Yes (Other)
  Sender: FDA-Public Use
  Company Number: FR-RANBAXY-2008RR-15844

PATIENT
  Age: 53 Year
  Sex: Male

DRUGS (1)
  1. MINOCYCLINE [Suspect]
     Indication: ROSACEA
     Dosage: 100 MG, UNK
     Dates: start: 20010901

REACTIONS (1)
  - ALVEOLITIS [None]
